FAERS Safety Report 7554387-1 (Version None)
Quarter: 2011Q2

REPORT INFORMATION
  Report Type: 
  Country: None (occurrence: None)
  Receive Date: 20110617
  Receipt Date: 20110530
  Transmission Date: 20111010
  Serious: Yes (Death, Other)
  Sender: FDA-Public Use
  Company Number: JP-NAPPMUNDI-MAG-2011-0001535

PATIENT
  Age: 66 Year
  Sex: Male

DRUGS (6)
  1. OXYCODONE HCL [Suspect]
     Dosage: 80 MG, DAILY
     Route: 048
  2. OXYCODONE HCL [Suspect]
     Indication: PRODUCT USED FOR UNKNOWN INDICATION
     Dosage: 10 MG, DAILY
     Route: 048
  3. OXYCODONE HCL [Suspect]
     Dosage: 60 MG, DAILY
     Route: 048
  4. OXYCODONE HCL [Suspect]
     Indication: PRODUCT USED FOR UNKNOWN INDICATION
     Dosage: 50 MG, DAILY
     Route: 048
  5. OXYCODONE HCL [Suspect]
     Dosage: 20 MG, DAILY
     Route: 048
  6. OXYCODONE HCL [Suspect]
     Dosage: 100 MG, DAILY
     Route: 048

REACTIONS (3)
  - DEATH [None]
  - CONSTIPATION [None]
  - DELIRIUM [None]
